FAERS Safety Report 6456944-2 (Version None)
Quarter: 2009Q4

REPORT INFORMATION
  Report Type: 
  Country: None (occurrence: None)
  Receive Date: 20091125
  Receipt Date: 20091118
  Transmission Date: 20100525
  Serious: Yes (Hospitalization)
  Sender: FDA-Public Use
  Company Number: CA-JNJFOC-20091105974

PATIENT
  Sex: Male
  Weight: 58 kg

DRUGS (5)
  1. REMICADE [Suspect]
     Dosage: 3RD DOSE (WEEK 6)
     Route: 042
  2. REMICADE [Suspect]
     Dosage: 2ND DOSE (WEEK 2)
     Route: 042
  3. REMICADE [Suspect]
     Indication: CROHN'S DISEASE
     Dosage: 1ST DOSE (WEEK 0)
     Route: 042
  4. IMURAN [Concomitant]
  5. PREDNISONE TAB [Concomitant]

REACTIONS (2)
  - HOSPITALISATION [None]
  - INFUSION RELATED REACTION [None]
